FAERS Safety Report 14244268 (Version 1)
Quarter: 2017Q4

REPORT INFORMATION
  Report Type: Spontaneous
  Country: JP (occurrence: JP)
  Receive Date: 20171201
  Receipt Date: 20171201
  Transmission Date: 20180321
  Serious: Yes (Hospitalization, Other)
  Sender: FDA-Public Use
  Company Number: JP-PFIZER INC-2017509529

PATIENT

DRUGS (1)
  1. RHEUMATREX [Suspect]
     Active Substance: METHOTREXATE SODIUM
     Dosage: 6 MG, WEEKLY
     Route: 048

REACTIONS (5)
  - Bone marrow failure [Not Recovered/Not Resolved]
  - Disseminated intravascular coagulation [Unknown]
  - White blood cell count decreased [Unknown]
  - Sepsis [Unknown]
  - Platelet count decreased [Recovering/Resolving]
